FAERS Safety Report 5390237-X (Version None)
Quarter: 2007Q3

REPORT INFORMATION
  Report Type: 
  Country: None (occurrence: None)
  Receive Date: 20070718
  Receipt Date: 20070713
  Transmission Date: 20080115
  Serious: Yes (Death, Hospitalization)
  Sender: FDA-Public Use
  Company Number: ES-ASTRAZENECA-2007AC01279

PATIENT
  Age: 73 Year
  Sex: Female

DRUGS (8)
  1. SEROQUEL [Suspect]
     Route: 048
     Dates: start: 20070411, end: 20070505
  2. SINEMET [Concomitant]
     Indication: PARKINSON'S DISEASE
     Route: 048
     Dates: start: 20060309, end: 20070510
  3. MIRAPEXIN [Concomitant]
     Indication: PARKINSON'S DISEASE
     Route: 048
     Dates: start: 20060509, end: 20070310
  4. MIRAPEXIN [Concomitant]
     Route: 048
     Dates: start: 20070410, end: 20070510
  5. VENLAFAXINE HCL [Concomitant]
     Indication: DEPRESSION
     Route: 048
     Dates: end: 20070509
  6. LORAZEPAM [Concomitant]
     Indication: DEPRESSION
     Route: 048
  7. ALPRAZOLAM [Concomitant]
     Indication: DEPRESSION
     Route: 048
  8. SOLAN [Concomitant]
     Indication: DEPRESSION
     Route: 048
     Dates: start: 20060301, end: 20070301

REACTIONS (2)
  - DEATH [None]
  - NEUROLEPTIC MALIGNANT SYNDROME [None]
